FAERS Safety Report 5834956-7 (Version None)
Quarter: 2008Q3

REPORT INFORMATION
  Report Type: 
  Country: None (occurrence: None)
  Receive Date: 20080806
  Receipt Date: 20070125
  Transmission Date: 20090109
  Serious: No
  Sender: FDA-Public Use
  Company Number: JP-JNJFOC-20080707139

PATIENT

DRUGS (1)
  1. RISPERDAL [Suspect]
     Indication: DRUG USE FOR UNKNOWN INDICATION
     Dosage: LIQUID MEDICINE FOR INTERNAL USE
     Route: 048

REACTIONS (1)
  - PLATELET COUNT DECREASED [None]
